FAERS Safety Report 10577906 (Version 1)
Quarter: 2014Q4

REPORT INFORMATION
  Report Type: Report from Study
  Country: US (occurrence: US)
  Receive Date: 20141112
  Receipt Date: 20141112
  Transmission Date: 20150529
  Serious: Yes (Other)
  Sender: FDA-Public Use
  Company Number: US-ROCHE-1488990

PATIENT
  Age: 38 Year
  Sex: Female
  Weight: 73.09 kg

DRUGS (23)
  1. ACTEMRA [Suspect]
     Active Substance: TOCILIZUMAB
     Indication: RHEUMATOID ARTHRITIS
     Route: 042
  2. ARAVA [Concomitant]
     Active Substance: LEFLUNOMIDE
     Route: 065
  3. PREDNISONE. [Concomitant]
     Active Substance: PREDNISONE
     Route: 048
  4. SYNTHROID [Concomitant]
     Active Substance: LEVOTHYROXINE SODIUM
     Route: 065
  5. BUPIVACAINE [Concomitant]
     Active Substance: BUPIVACAINE
     Dosage: 0.5CC, LEFT WRIST.
     Route: 058
  6. CHROMAGEN FORTE [Concomitant]
     Dosage: 50-101-1 MG
     Route: 048
  7. HYZAAR [Concomitant]
     Active Substance: HYDROCHLOROTHIAZIDE\LOSARTAN POTASSIUM
     Dosage: 100-25 MG.
     Route: 048
  8. PREDNISONE. [Concomitant]
     Active Substance: PREDNISONE
     Route: 048
  9. MOBIC [Concomitant]
     Active Substance: MELOXICAM
     Dosage: 1/2 TO ONE TABLET DAILY AS NEEDED.
     Route: 048
  10. FOLIC ACID. [Concomitant]
     Active Substance: FOLIC ACID
     Dosage: 3 TABLETS
     Route: 048
  11. SYNTHROID [Concomitant]
     Active Substance: LEVOTHYROXINE SODIUM
     Route: 065
  12. YASMIN [Concomitant]
     Active Substance: DROSPIRENONE\ETHINYL ESTRADIOL
     Dosage: 3-0.03MG AS DIRECTED.
     Route: 048
     Dates: end: 20120110
  13. DIOVAN HCT [Concomitant]
     Active Substance: HYDROCHLOROTHIAZIDE\VALSARTAN
     Dosage: 160-25 MG.
     Route: 048
  14. SYNTHROID [Concomitant]
     Active Substance: LEVOTHYROXINE SODIUM
     Route: 065
  15. DEPO-MEDROL [Concomitant]
     Active Substance: METHYLPREDNISOLONE ACETATE
     Dosage: LEFT WRIST.
     Route: 065
  16. MOBIC [Concomitant]
     Active Substance: MELOXICAM
     Indication: PAIN
     Route: 048
  17. RITUXAN [Suspect]
     Active Substance: RITUXIMAB
     Indication: RHEUMATOID ARTHRITIS
     Dosage: 10 MG/ML CONCENTRATE, ON DAY 1 AND DAY 15.
     Route: 042
  18. ARAVA [Concomitant]
     Active Substance: LEFLUNOMIDE
     Indication: RHEUMATOID ARTHRITIS
     Route: 048
  19. LORTAB [Concomitant]
     Active Substance: ACETAMINOPHEN\HYDROCODONE BITARTRATE
     Indication: PAIN
     Dosage: 10-500 MG; TAKE 1 TABLET BY MOUTH EVERY 8H PRN.
     Route: 048
  20. LORTAB [Concomitant]
     Active Substance: ACETAMINOPHEN\HYDROCODONE BITARTRATE
     Dosage: 7.5-500 MG, PRN.
     Route: 048
  21. FOSAMAX [Concomitant]
     Active Substance: ALENDRONATE SODIUM
     Dosage: AS DIRECTED
     Route: 048
  22. FLEXERIL [Concomitant]
     Active Substance: CYCLOBENZAPRINE HYDROCHLORIDE
     Dosage: AT BEDTIME AS NEEDED
     Route: 048
  23. LYRICA [Concomitant]
     Active Substance: PREGABALIN
     Route: 048

REACTIONS (23)
  - Insomnia [Unknown]
  - Pain in extremity [Unknown]
  - Neck pain [Unknown]
  - Joint swelling [Unknown]
  - Weight increased [Unknown]
  - Chest pain [Unknown]
  - Heart rate irregular [Unknown]
  - Seasonal allergy [Unknown]
  - Contusion [Unknown]
  - Dyspepsia [Unknown]
  - Musculoskeletal stiffness [Unknown]
  - Cough [Unknown]
  - Arthralgia [Unknown]
  - Erythema [Unknown]
  - Drug hypersensitivity [Unknown]
  - Weight decreased [Unknown]
  - Rheumatoid arthritis [Unknown]
  - Arthralgia [Unknown]
  - Somatoform disorder [Unknown]
  - Hand deformity [Unknown]
  - Joint swelling [Unknown]
  - Joint warmth [Unknown]
  - Paraesthesia [Unknown]

NARRATIVE: CASE EVENT DATE: 201110
